FAERS Safety Report 13907045 (Version 2)
Quarter: 2019Q3

REPORT INFORMATION
  Report Type: Spontaneous
  Country: US (occurrence: US)
  Receive Date: 20170825
  Receipt Date: 20190916
  Transmission Date: 20191004
  Serious: No
  Sender: FDA-Public Use
  Company Number: US-INCYTE CORPORATION-2017IN007086

PATIENT

DRUGS (2)
  1. JAKAFI [Suspect]
     Active Substance: RUXOLITINIB
     Indication: MYELOFIBROSIS
     Dosage: 25 MG, BID
     Route: 048
     Dates: start: 20160304, end: 20170811
  2. JAKAFI [Suspect]
     Active Substance: RUXOLITINIB
     Dosage: 2 25 MG TABLETS (50 MG) ON EVEN DAYS, 1 TABLET (25 MG) ON ODD DAYS
     Route: 048
     Dates: end: 20190907

REACTIONS (1)
  - Product dose omission [Unknown]
